FAERS Safety Report 9397861 (Version 1)
Quarter: 2013Q3

REPORT INFORMATION
  Report Type: Report from Study
  Country: DE (occurrence: DE)
  Receive Date: 20130712
  Receipt Date: 20130712
  Transmission Date: 20140515
  Serious: Yes (Death, Hospitalization)
  Sender: FDA-Public Use
  Company Number: DE-ROCHE-1245460

PATIENT
  Sex: Male
  Weight: 80 kg

DRUGS (8)
  1. AVASTIN [Suspect]
     Indication: COLON CANCER
     Route: 065
     Dates: start: 20130305, end: 20130528
  2. AVASTIN [Suspect]
     Indication: RECTAL CANCER
  3. 5-FU [Suspect]
     Indication: COLON CANCER
     Route: 065
     Dates: start: 20130305, end: 20130528
  4. 5-FU [Suspect]
     Indication: RECTAL CANCER
  5. FOLIC ACID [Suspect]
     Indication: COLON CANCER
     Route: 065
     Dates: start: 20130305, end: 20130528
  6. FOLIC ACID [Suspect]
     Indication: RECTAL CANCER
  7. KEVATRIL [Concomitant]
     Route: 042
     Dates: start: 20130305, end: 20130528
  8. DEXAMETHASON [Concomitant]
     Route: 042
     Dates: start: 20130305, end: 20130528

REACTIONS (5)
  - Mechanical ileus [Fatal]
  - Vertigo [Unknown]
  - Pyrexia [Unknown]
  - Vomiting [Unknown]
  - General physical health deterioration [Fatal]
